FAERS Safety Report 9254870 (Version 2)
Quarter: 2014Q1

REPORT INFORMATION
  Report Type: Spontaneous
  Country: US (occurrence: US)
  Receive Date: 20130425
  Receipt Date: 20140203
  Transmission Date: 20141002
  Serious: No
  Sender: FDA-Public Use
  Company Number: US-ASTRAZENECA-2013SE27631

PATIENT
  Age: 748 Month
  Sex: Female
  Weight: 99.3 kg

DRUGS (23)
  1. NEXIUM [Suspect]
     Indication: GASTROOESOPHAGEAL REFLUX DISEASE
     Route: 048
     Dates: start: 20060919
  2. NEXIUM [Suspect]
     Indication: GASTROOESOPHAGEAL REFLUX DISEASE
     Route: 048
     Dates: start: 2007, end: 2010
  3. PRILOSEC [Suspect]
     Indication: GASTROOESOPHAGEAL REFLUX DISEASE
     Route: 048
  4. PREVACID [Concomitant]
     Indication: GASTROOESOPHAGEAL REFLUX DISEASE
  5. LEXAPRO [Concomitant]
     Route: 048
     Dates: start: 20070214
  6. LEVAQUIN [Concomitant]
     Route: 048
     Dates: start: 20070215
  7. ALPRAZOLAM [Concomitant]
     Indication: ANXIETY
     Route: 048
     Dates: start: 20070215
  8. ALPRAZOLAM [Concomitant]
     Indication: ANXIETY
     Route: 048
     Dates: start: 20070215
  9. AMBIEN [Concomitant]
     Route: 048
     Dates: start: 20070221
  10. CYCLOBENZAPRINE [Concomitant]
     Route: 048
     Dates: start: 20070319
  11. TEMAZEPAM [Concomitant]
     Route: 048
     Dates: start: 20070430
  12. CELEBREX [Concomitant]
     Route: 048
     Dates: start: 20070814
  13. TIZANIDINE [Concomitant]
     Route: 048
     Dates: start: 20070822
  14. PROMETHAZINE [Concomitant]
     Route: 048
     Dates: start: 20071022
  15. LYRICA [Concomitant]
     Route: 048
     Dates: start: 20080131
  16. CYMBALTA [Concomitant]
     Route: 048
     Dates: start: 20080409
  17. ULTRAM [Concomitant]
     Route: 048
     Dates: start: 20081009
  18. FEXOFENADINE [Concomitant]
     Route: 048
     Dates: start: 20090122
  19. PROTONIX [Concomitant]
     Route: 048
     Dates: start: 20060714
  20. MECLIZINE [Concomitant]
     Route: 048
     Dates: start: 20061004
  21. CLARINEX [Concomitant]
     Route: 048
     Dates: start: 20061212
  22. METRONIDAZOLE [Concomitant]
     Route: 048
     Dates: start: 20060419
  23. ESTRADIOL [Concomitant]
     Route: 048
     Dates: start: 20050217

REACTIONS (10)
  - Osteoporosis [Unknown]
  - Bone disorder [Unknown]
  - Multiple fractures [Unknown]
  - Osteopenia [Unknown]
  - Type 2 diabetes mellitus [Unknown]
  - Arthritis [Unknown]
  - Osteoarthritis [Unknown]
  - Spinal osteoarthritis [Unknown]
  - Major depression [Unknown]
  - Depression [Unknown]
